FAERS Safety Report 19382394 (Version 1)
Quarter: 2021Q2

REPORT INFORMATION
  Report Type: Spontaneous
  Country: DE (occurrence: DE)
  Receive Date: 20210607
  Receipt Date: 20210607
  Transmission Date: 20210717
  Serious: Yes (Other)
  Sender: FDA-Public Use
  Company Number: DE-AUROBINDO-AUR-APL-2021-022766

PATIENT
  Age: 75 Year
  Sex: Male

DRUGS (3)
  1. OXALIPLATIN. [Suspect]
     Active Substance: OXALIPLATIN
     Indication: CHEMOTHERAPY
     Dosage: 80 MILLIGRAM/SQ. METER
     Route: 042
  2. LEUCOVORIN. [Suspect]
     Active Substance: LEUCOVORIN
     Indication: CHEMOTHERAPY
     Dosage: 400 MILLIGRAM/SQ. METER ON DAY 1
     Route: 065
  3. 5?FU [Suspect]
     Active Substance: FLUOROURACIL
     Indication: CHEMOTHERAPY
     Dosage: 2400 MILLIGRAM/SQ. METER (FOLLOWED ON DAY 1 AS A CONTINUOUS INFUSION FOR 46 H)
     Route: 065

REACTIONS (13)
  - Haemorrhage [Unknown]
  - Hypochromic anaemia [Unknown]
  - Palpable purpura [Unknown]
  - Arthralgia [Unknown]
  - Skin lesion [Unknown]
  - Cutaneous vasculitis [Recovered/Resolved]
  - Leukocytosis [Unknown]
  - Pyrexia [Recovered/Resolved]
  - Petechiae [Unknown]
  - Oedema [Unknown]
  - Ulcer [Unknown]
  - Toxicity to various agents [Unknown]
  - Proteinuria [Unknown]
